FAERS Safety Report 16233095 (Version 5)
Quarter: 2020Q1

REPORT INFORMATION
  Report Type: Spontaneous
  Country: US (occurrence: US)
  Receive Date: 20190424
  Receipt Date: 20200106
  Transmission Date: 20200409
  Serious: Yes (Other)
  Sender: FDA-Public Use
  Company Number: US-PFIZER INC-2018421408

PATIENT
  Age: 64 Year
  Sex: Male
  Weight: 86.17 kg

DRUGS (4)
  1. AIMOVIG [Suspect]
     Active Substance: ERENUMAB-AOOE
     Indication: MIGRAINE
     Dosage: UNK, MONTHLY (ONE A MONTH)
     Route: 058
     Dates: start: 20190520, end: 20190917
  2. RELPAX [Suspect]
     Active Substance: ELETRIPTAN HYDROBROMIDE
     Indication: HEADACHE
     Dosage: 40 MG, AS NEEDED (MAY REPEAT 1 DOSE IN 2 HOURS IF NECESSARY)
     Route: 048
  3. RELPAX [Suspect]
     Active Substance: ELETRIPTAN HYDROBROMIDE
     Indication: MIGRAINE
  4. EFFEXOR [Concomitant]
     Active Substance: VENLAFAXINE HYDROCHLORIDE
     Dosage: 300 MG, UNK

REACTIONS (5)
  - Agoraphobia [Recovered/Resolved]
  - Road traffic accident [Recovered/Resolved]
  - Mental disorder [Recovered/Resolved]
  - Product prescribing error [Recovered/Resolved]
  - Drug ineffective [Recovered/Resolved]
